FAERS Safety Report 7810007-X (Version None)
Quarter: 2011Q4

REPORT INFORMATION
  Report Type: 
  Country: None (occurrence: None)
  Receive Date: 20111012
  Receipt Date: 20111011
  Transmission Date: 20120403
  Serious: Yes (Other)
  Sender: FDA-Public Use
  Company Number: US-PFIZER INC-2011242701

PATIENT
  Sex: Male
  Weight: 24.943 kg

DRUGS (3)
  1. ZOLOFT [Suspect]
     Indication: ANXIETY
     Dosage: 25 MG, DAILY
     Route: 048
     Dates: start: 20111001, end: 20111001
  2. VITAMIN TAB [Concomitant]
     Dosage: UNK
  3. ZOLOFT [Suspect]
     Dosage: CUTTING THE TABLETS OF 25MG
     Route: 048
     Dates: start: 20111001, end: 20111011

REACTIONS (5)
  - NIGHTMARE [None]
  - HEADACHE [None]
  - PSYCHOMOTOR HYPERACTIVITY [None]
  - AGGRESSION [None]
  - DIZZINESS [None]
